FAERS Safety Report 16406378 (Version 4)
Quarter: 2019Q3

REPORT INFORMATION
  Report Type: Spontaneous
  Country: JP (occurrence: JP)
  Receive Date: 20190607
  Receipt Date: 20190814
  Transmission Date: 20191004
  Serious: Yes (Hospitalization, Disabling, Other)
  Sender: FDA-Public Use
  Company Number: JP-009507513-1904JPN003241J

PATIENT
  Age: 70 Year
  Sex: Male
  Weight: 42 kg

DRUGS (12)
  1. PREDONINE [Concomitant]
     Active Substance: PREDNISOLONE
     Indication: TUMOUR ASSOCIATED FEVER
     Dosage: 15 MILLIGRAM, QD
     Route: 048
     Dates: start: 20190327, end: 20190329
  2. PREDONINE [Concomitant]
     Active Substance: PREDNISOLONE
     Dosage: 15 MILLIGRAM, QD
     Route: 048
     Dates: start: 20190403, end: 20190423
  3. PRIMOBOLAN-DEPOT [Concomitant]
     Active Substance: METHENOLONE ENANTHATE
     Indication: PHYSICAL FITNESS TRAINING
     Dosage: 5 MILLIGRAM, BID
     Route: 048
     Dates: start: 20190227
  4. MAGMITT [Concomitant]
     Active Substance: MAGNESIUM OXIDE
     Indication: CONSTIPATION
     Dosage: 660 MILLIGRAM, TID
     Route: 048
     Dates: start: 20190121
  5. KEYTRUDA [Suspect]
     Active Substance: PEMBROLIZUMAB
     Indication: NON-SMALL CELL LUNG CANCER
     Dosage: 200 MILLIGRAM, Q3W
     Route: 041
     Dates: start: 20190306, end: 20190306
  6. PROMAC [Concomitant]
     Active Substance: NITROFURANTOIN
     Indication: OESOPHAGITIS
     Dosage: 75 MILLIGRAM, BID
     Route: 048
     Dates: start: 20190130
  7. ALLOID G [Concomitant]
     Active Substance: SODIUM ALGINATE
     Indication: OESOPHAGITIS
     Dosage: 5 MILLIGRAM, QID
     Route: 048
     Dates: start: 20190130
  8. NEXIUM [Concomitant]
     Active Substance: ESOMEPRAZOLE MAGNESIUM
     Indication: STRESS
     Dosage: 20 MILLIGRAM, QD
     Route: 048
     Dates: start: 20190113
  9. PANVITAN [Concomitant]
     Active Substance: VITAMINS
     Dosage: 1 GRAM, QD
     Route: 048
     Dates: start: 20190305
  10. PREDONINE [Concomitant]
     Active Substance: PREDNISOLONE
     Dosage: 10 MILLIGRAM, QD
     Route: 048
     Dates: start: 20190330, end: 20190402
  11. PEMETREXED DISODIUM [Concomitant]
     Active Substance: PEMETREXED DISODIUM
     Indication: NON-SMALL CELL LUNG CANCER
     Dosage: 600 MILLIGRAM
     Route: 041
     Dates: start: 20190306, end: 20190306
  12. CARBOPLATIN. [Concomitant]
     Active Substance: CARBOPLATIN
     Indication: NON-SMALL CELL LUNG CANCER
     Dosage: 300 MILLIGRAM
     Route: 041
     Dates: start: 20190306, end: 20190306

REACTIONS (1)
  - IIIrd nerve paralysis [Not Recovered/Not Resolved]

NARRATIVE: CASE EVENT DATE: 20190405
